FAERS Safety Report 16817427 (Version 7)
Quarter: 2021Q3

REPORT INFORMATION
  Report Type: Spontaneous
  Country: US (occurrence: US)
  Receive Date: 20190917
  Receipt Date: 20210809
  Transmission Date: 20211014
  Serious: Yes (Hospitalization, Other)
  Sender: FDA-Public Use
  Company Number: US-PFIZER INC-2019398111

PATIENT
  Age: 80 Year
  Sex: Female
  Weight: 58.51 kg

DRUGS (3)
  1. PREMARIN [Suspect]
     Active Substance: ESTROGENS, CONJUGATED
     Indication: HOT FLUSH
     Dosage: 0.625 ? 1, DAILY
     Dates: start: 1985
  2. PREMARIN [Suspect]
     Active Substance: ESTROGENS, CONJUGATED
     Dosage: 0.625 MG [ONCE A DAILY 3 TIMES WEEK]
  3. PREMARIN [Suspect]
     Active Substance: ESTROGENS, CONJUGATED
     Dosage: 0.625 MG, DAILY (0.625 DOSE UNITS NOT SPECIFIED SWALLOW THE PILL EVERY DAY)
     Route: 048
     Dates: start: 202011

REACTIONS (10)
  - Emotional disorder [Unknown]
  - Asthenia [Unknown]
  - Feeling abnormal [Unknown]
  - Hyperhidrosis [Unknown]
  - Off label use [Unknown]
  - Incorrect dose administered [Unknown]
  - Hot flush [Not Recovered/Not Resolved]
  - Malaise [Unknown]
  - Insomnia [Recovered/Resolved]
  - Drug dependence [Unknown]

NARRATIVE: CASE EVENT DATE: 2016
